FAERS Safety Report 5792075-2 (Version None)
Quarter: 2008Q2

REPORT INFORMATION
  Report Type: 
  Country: None (occurrence: None)
  Receive Date: 20080626
  Receipt Date: 20080307
  Transmission Date: 20081010
  Serious: No
  Sender: FDA-Public Use
  Company Number: US-ASTRAZENECA-2008UW04556

PATIENT
  Age: 66 Year
  Sex: Female
  Weight: 61.2 kg

DRUGS (7)
  1. PULMICORT FLEXHALER [Suspect]
     Indication: DYSPNOEA
     Route: 055
     Dates: start: 20071201
  2. COUMADIN [Concomitant]
  3. ATENOLOL [Concomitant]
  4. DESIMPRAMINE [Concomitant]
  5. LASIX [Concomitant]
  6. COZAAR [Concomitant]
  7. SIMVASTATIN [Concomitant]

REACTIONS (4)
  - ANOREXIA [None]
  - DRUG INEFFECTIVE [None]
  - DYSGEUSIA [None]
  - DYSPNOEA [None]
